FAERS Safety Report 9453974 (Version 3)
Quarter: 2013Q3

REPORT INFORMATION
  Report Type: Spontaneous
  Country: US (occurrence: US)
  Receive Date: 20130812
  Receipt Date: 20130902
  Transmission Date: 20140515
  Serious: Yes (Other)
  Sender: FDA-Public Use
  Company Number: US-THROMBOGENICS INC.-JET-2013-153

PATIENT
  Sex: 0

DRUGS (4)
  1. JETREA [Suspect]
     Indication: VITREOUS ADHESIONS
     Dosage: 0.125 MG, ONE TIME DOSE
     Route: 031
     Dates: start: 20130321, end: 20130321
  2. JETREA [Suspect]
     Indication: MACULAR HOLE
  3. VIVELLE                            /00045401/ [Concomitant]
     Indication: PRODUCT USED FOR UNKNOWN INDICATION
     Dosage: 0.0375 MG, EVERY TWO DAYS
     Dates: start: 2012
  4. PROVERA [Concomitant]
     Indication: PRODUCT USED FOR UNKNOWN INDICATION
     Dosage: 10 MG, 10 DAYS OUT OF MONTH
     Dates: start: 2012

REACTIONS (9)
  - Macular hole [Recovered/Resolved]
  - Retinal degeneration [Recovered/Resolved]
  - Vision blurred [Recovered/Resolved]
  - Vitreous floaters [Recovered/Resolved]
  - Visual acuity reduced [Recovered/Resolved]
  - Chromatopsia [Recovered/Resolved]
  - Photopsia [Recovered/Resolved]
  - Photopsia [Recovered/Resolved]
  - Off label use [Unknown]
